FAERS Safety Report 23458717 (Version 2)
Quarter: 2024Q1

REPORT INFORMATION
  Report Type: Spontaneous
  Country: DE (occurrence: DE)
  Receive Date: 20240130
  Receipt Date: 20240222
  Transmission Date: 20240409
  Serious: Yes (Life-Threatening, Hospitalization, Other)
  Sender: FDA-Public Use
  Company Number: DE-BRISTOL-MYERS SQUIBB COMPANY-2024-015165

PATIENT
  Sex: Female

DRUGS (1)
  1. APIXABAN [Suspect]
     Active Substance: APIXABAN
     Indication: Atrial fibrillation
     Dates: start: 2016

REACTIONS (19)
  - Cardiac ventricular thrombosis [Unknown]
  - Cardiac aneurysm [Unknown]
  - Decreased appetite [Unknown]
  - COVID-19 pneumonia [Unknown]
  - Superinfection bacterial [Unknown]
  - Chronic obstructive pulmonary disease [Unknown]
  - Cardiac failure [Unknown]
  - Left ventricular failure [Unknown]
  - Pain [Unknown]
  - Restless legs syndrome [Unknown]
  - Hypocalcaemia [Unknown]
  - Coronary artery disease [Unknown]
  - Mitral valve incompetence [Unknown]
  - Aortic rupture [Unknown]
  - Haemangioma [Unknown]
  - Renal neoplasm [Unknown]
  - Thyroid disorder [Unknown]
  - Spinal fracture [Unknown]
  - Syncope [Unknown]

NARRATIVE: CASE EVENT DATE: 20200401
